FAERS Safety Report 13431898 (Version 10)
Quarter: 2018Q1

REPORT INFORMATION
  Report Type: Spontaneous
  Country: KR (occurrence: KR)
  Receive Date: 20170412
  Receipt Date: 20180216
  Transmission Date: 20180508
  Serious: Yes (Hospitalization, Other)
  Sender: FDA-Public Use
  Company Number: KR-009507513-1704KOR002268

PATIENT
  Age: 64 Year
  Sex: Male

DRUGS (10)
  1. VASTINAN MR [Concomitant]
     Indication: ANGINA PECTORIS
     Dosage: 35 MG, BID
     Route: 048
     Dates: start: 20090923, end: 20161107
  2. VASTINAN MR [Concomitant]
     Dosage: 35 MG, QD
     Route: 048
     Dates: start: 20161109
  3. ATOZET [Suspect]
     Active Substance: ATORVASTATIN CALCIUM\EZETIMIBE
     Indication: DYSLIPIDAEMIA
     Dosage: 10/10 MG (1 TABLET), QD
     Route: 048
     Dates: start: 20161109
  4. LASIX [Concomitant]
     Active Substance: FUROSEMIDE
     Indication: PROPHYLAXIS
     Dosage: 40 MG, QD
     Route: 048
     Dates: start: 20161109
  5. DILATREND [Concomitant]
     Active Substance: CARVEDILOL
     Indication: PROPHYLAXIS
     Dosage: 6.25 MG (1 TABLET), BID
     Route: 048
     Dates: start: 20090722
  6. PLATLESS [Concomitant]
     Indication: ACUTE MYOCARDIAL INFARCTION
     Dosage: 75 MG, QD
     Route: 048
     Dates: start: 20160713
  7. ISOTRIL [Concomitant]
     Indication: ANGINA PECTORIS
     Dosage: 60 MG, QD
     Route: 048
     Dates: start: 20161109
  8. PLETAAL [Concomitant]
     Active Substance: CILOSTAZOL
     Indication: ACUTE MYOCARDIAL INFARCTION
     Dosage: 100 MG, QD
     Route: 048
     Dates: start: 20151102
  9. ALDACTONE [Concomitant]
     Active Substance: SPIRONOLACTONE
     Indication: PROPHYLAXIS
     Dosage: 25 MG, QD
     Route: 048
     Dates: start: 20161109
  10. ASPIRIN PROTECT [Concomitant]
     Active Substance: ASPIRIN
     Indication: ACUTE MYOCARDIAL INFARCTION
     Dosage: 100 MG, QD
     Route: 048
     Dates: start: 20120730

REACTIONS (6)
  - Orthostatic hypotension [Recovered/Resolved]
  - Loss of consciousness [Recovered/Resolved]
  - Loss of consciousness [Recovered/Resolved]
  - Intracranial aneurysm [Recovered/Resolved]
  - Cerebral infarction [Recovered/Resolved]
  - Cerebral artery occlusion [Recovered/Resolved]

NARRATIVE: CASE EVENT DATE: 201702
